FAERS Safety Report 22848142 (Version 6)
Quarter: 2024Q4

REPORT INFORMATION
  Report Type: Spontaneous
  Country: JP (occurrence: JP)
  Receive Date: 20230822
  Receipt Date: 20241101
  Transmission Date: 20250114
  Serious: Yes (Other)
  Sender: BRISTOL MYERS SQUIBB
  Company Number: JP-BRISTOL-MYERS SQUIBB COMPANY-2023-116934

PATIENT
  Age: 79 Year
  Sex: Male

DRUGS (6)
  1. YERVOY [Suspect]
     Active Substance: IPILIMUMAB
     Indication: Malignant melanoma
     Route: 041
     Dates: start: 20220530
  2. YERVOY [Suspect]
     Active Substance: IPILIMUMAB
     Route: 041
     Dates: start: 20220615
  3. YERVOY [Suspect]
     Active Substance: IPILIMUMAB
     Route: 041
     Dates: start: 20220706, end: 20220706
  4. OPDIVO [Suspect]
     Active Substance: NIVOLUMAB
     Indication: Malignant melanoma
     Route: 041
     Dates: start: 20220530
  5. OPDIVO [Suspect]
     Active Substance: NIVOLUMAB
     Dates: start: 20220615
  6. OPDIVO [Suspect]
     Active Substance: NIVOLUMAB
     Dates: start: 20220706, end: 20220706

REACTIONS (12)
  - Immune-mediated enterocolitis [Unknown]
  - Immune-mediated lung disease [Unknown]
  - Enteritis infectious [Unknown]
  - Abdominal pain lower [Unknown]
  - Blood pressure decreased [Unknown]
  - Pancytopenia [Unknown]
  - Ileus paralytic [Unknown]
  - Haematochezia [Unknown]
  - Anaemia [Unknown]
  - Small intestinal haemorrhage [Recovering/Resolving]
  - Dyspnoea [Unknown]
  - C-reactive protein increased [Unknown]

NARRATIVE: CASE EVENT DATE: 20220707
